FAERS Safety Report 17026360 (Version 1)
Quarter: 2019Q4

REPORT INFORMATION
  Report Type: Spontaneous
  Country: US (occurrence: US)
  Receive Date: 20191112
  Receipt Date: 20191112
  Transmission Date: 20200122
  Serious: No
  Sender: FDA-Public Use
  Company Number: None

PATIENT
  Age: 34 Year
  Sex: Female
  Weight: 60.75 kg

DRUGS (7)
  1. SBUTEX/BUPRENORPHINE [Concomitant]
  2. PRENATAL VITAMINS [Concomitant]
     Active Substance: VITAMINS
  3. ALPRAZOLAM. [Concomitant]
     Active Substance: ALPRAZOLAM
  4. FISH OIL [Concomitant]
     Active Substance: FISH OIL
  5. VITAMIN B12 [Concomitant]
     Active Substance: CYANOCOBALAMIN
  6. BUPRENORPHINE HCI 8MG SUB RHOD [Suspect]
     Active Substance: BUPRENORPHINE HYDROCHLORIDE
     Indication: PAIN
     Dosage: ?          QUANTITY:1 TABLET(S);?
     Route: 060
     Dates: start: 20191029, end: 20191111
  7. VITAMIN D [Concomitant]
     Active Substance: VITAMIN D NOS

REACTIONS (12)
  - Product formulation issue [None]
  - Product substitution issue [None]
  - Loss of personal independence in daily activities [None]
  - Impaired driving ability [None]
  - Vomiting [None]
  - Somnolence [None]
  - Product size issue [None]
  - Nausea [None]
  - Pain [None]
  - Product dispensing error [None]
  - Product solubility abnormal [None]
  - Product taste abnormal [None]

NARRATIVE: CASE EVENT DATE: 20191029
